FAERS Safety Report 13261302 (Version 1)
Quarter: 2017Q1

REPORT INFORMATION
  Report Type: Spontaneous
  Country: US (occurrence: US)
  Receive Date: 20170222
  Receipt Date: 20170222
  Transmission Date: 20170428
  Serious: Yes (Other)
  Sender: FDA-Public Use
  Company Number: US-ELI_LILLY_AND_COMPANY-US201702007418

PATIENT
  Age: 57 Year
  Sex: Female

DRUGS (3)
  1. HUMULIN R U-500 [Suspect]
     Active Substance: INSULIN HUMAN
     Dosage: 60 U, QD
     Route: 065
  2. HUMULIN R U-500 [Suspect]
     Active Substance: INSULIN HUMAN
     Indication: DIABETES MELLITUS
     Dosage: 30 U, QD
     Route: 065
     Dates: start: 20170208
  3. HUMULIN R U-500 [Suspect]
     Active Substance: INSULIN HUMAN
     Dosage: 40 U, QD
     Route: 065

REACTIONS (2)
  - Stress [Unknown]
  - Blood glucose increased [Recovered/Resolved]

NARRATIVE: CASE EVENT DATE: 20170214
